FAERS Safety Report 4275531-8 (Version None)
Quarter: 2004Q1

REPORT INFORMATION
  Report Type: 
  Country: None (occurrence: None)
  Receive Date: 20040121
  Receipt Date: 20040115
  Transmission Date: 20041129
  Serious: Yes (Death)
  Sender: FDA-Public Use
  Company Number: FR-GLAXOSMITHKLINE-B0319879A

PATIENT
  Age: 56 Year
  Sex: Female
  Weight: 38 kg

DRUGS (11)
  1. CLAMOXYL [Suspect]
     Dosage: 1G THREE TIMES PER DAY
     Route: 048
     Dates: start: 20031212
  2. LEXOMIL [Suspect]
     Dosage: .5UNIT PER DAY
     Route: 048
     Dates: start: 20031117
  3. ZYPREXA [Suspect]
     Dosage: 1UNIT PER DAY
     Route: 048
     Dates: start: 20031217
  4. THERALENE (ALIMEMAZINE) [Suspect]
     Dosage: 10UNIT PER DAY
     Route: 048
     Dates: start: 20031209
  5. TERCIAN [Suspect]
     Dosage: 25UNIT THREE TIMES PER DAY
     Route: 048
     Dates: start: 20031119
  6. ARTANE [Suspect]
     Dosage: 10MG UNKNOWN
     Route: 030
     Dates: start: 20031219, end: 20031219
  7. RISPERDAL [Concomitant]
     Route: 065
     Dates: start: 20031117, end: 20031217
  8. SEROPRAM [Concomitant]
     Route: 065
     Dates: start: 20031117, end: 20031217
  9. UTROGESTAN [Concomitant]
     Dosage: 100MG PER DAY
     Route: 065
  10. SEGLOR [Concomitant]
     Dosage: 2UNIT PER DAY
     Route: 048
  11. IMOVANE [Concomitant]
     Dosage: 1UNIT PER DAY
     Route: 048

REACTIONS (3)
  - CARDIO-RESPIRATORY ARREST [None]
  - CYANOSIS [None]
  - DEATH [None]
